FAERS Safety Report 12094512 (Version 1)
Quarter: 2016Q1

REPORT INFORMATION
  Report Type: Report from Study
  Country: CA (occurrence: CA)
  Receive Date: 20160219
  Receipt Date: 20160219
  Transmission Date: 20160526
  Serious: Yes (Other)
  Sender: FDA-Public Use
  Company Number: CA-JNJFOC-20160212710

PATIENT
  Age: 49 Year
  Sex: Male
  Weight: 97 kg

DRUGS (1)
  1. REMICADE [Suspect]
     Active Substance: INFLIXIMAB
     Indication: ANKYLOSING SPONDYLITIS
     Route: 042
     Dates: start: 20130513

REACTIONS (5)
  - Pain [Unknown]
  - Hypoaesthesia [Unknown]
  - Lymphadenectomy [Unknown]
  - Burning sensation [Unknown]
  - Sleep disorder [Unknown]

NARRATIVE: CASE EVENT DATE: 201602
